FAERS Safety Report 7080672-6 (Version None)
Quarter: 2010Q4

REPORT INFORMATION
  Report Type: 
  Country: None (occurrence: None)
  Receive Date: 20101103
  Receipt Date: 20101025
  Transmission Date: 20110411
  Serious: Yes (Hospitalization, Other)
  Sender: FDA-Public Use
  Company Number: PHHO2010IN06143

PATIENT
  Sex: Female

DRUGS (2)
  1. TELBIVUDINE [Suspect]
     Indication: HEPATITIS B
     Dosage: 1 DOSAGE FORM DAILY
     Route: 048
     Dates: start: 20090522, end: 20100402
  2. TELBIVUDINE [Suspect]
     Dosage: UNK

REACTIONS (11)
  - AXONAL NEUROPATHY [None]
  - BLOOD CREATINE PHOSPHOKINASE INCREASED [None]
  - DEMYELINATING POLYNEUROPATHY [None]
  - DYSSTASIA [None]
  - HYPOAESTHESIA [None]
  - LUMBAR RADICULOPATHY [None]
  - MUSCLE FATIGUE [None]
  - MUSCULAR WEAKNESS [None]
  - MUSCULOSKELETAL STIFFNESS [None]
  - MYOPATHY [None]
  - PAIN IN EXTREMITY [None]
